FAERS Safety Report 9144350 (Version 1)
Quarter: 2013Q1

REPORT INFORMATION
  Report Type: Spontaneous
  Country: US (occurrence: US)
  Receive Date: 20130306
  Receipt Date: 20130306
  Transmission Date: 20140127
  Serious: Yes (Other)
  Sender: FDA-Public Use
  Company Number: US-PFIZER INC-2013077258

PATIENT
  Sex: Male

DRUGS (8)
  1. LIPITOR [Suspect]
     Dosage: UNK
     Dates: end: 2012
  2. LIPITOR [Suspect]
     Dosage: UNK
     Dates: start: 2012
  3. ATORVASTATIN CALCIUM [Suspect]
     Dosage: UNK
     Dates: start: 201207, end: 2012
  4. ATORVASTATIN CALCIUM [Suspect]
     Dosage: UNK
     Dates: end: 201302
  5. TRICOR [Concomitant]
     Dosage: UNK
  6. METOPROLOL [Concomitant]
     Dosage: UNK
  7. BABY ASPIRIN [Concomitant]
     Dosage: UNK
  8. PLAVIX [Concomitant]
     Dosage: UNK

REACTIONS (3)
  - Blindness [Unknown]
  - Pain in extremity [Unknown]
  - Malaise [Unknown]
